FAERS Safety Report 10974338 (Version 3)
Quarter: 2015Q2

REPORT INFORMATION
  Report Type: Spontaneous
  Country: US (occurrence: US)
  Receive Date: 20150401
  Receipt Date: 20150528
  Transmission Date: 20150821
  Serious: Yes (Hospitalization, Other)
  Sender: FDA-Public Use
  Company Number: US-UNITED THERAPEUTICS-UNT-2015-002977

PATIENT
  Age: 76 Year
  Sex: Male
  Weight: 67.57 kg

DRUGS (3)
  1. REMODULIN [Suspect]
     Active Substance: TREPROSTINIL
     Indication: PULMONARY HYPERTENSION
     Dosage: 0.041 ?G/KG, CONTINUING
     Route: 058
     Dates: start: 20140630
  2. REMODULIN [Suspect]
     Active Substance: TREPROSTINIL
     Dosage: 0.062 ?G/KG, CONTINUING
     Route: 058
     Dates: start: 20140731
  3. TRACLEER [Concomitant]
     Active Substance: BOSENTAN\BOSENTAN MONOHYDRATE
     Indication: PRODUCT USED FOR UNKNOWN INDICATION

REACTIONS (5)
  - Oxygen saturation decreased [Unknown]
  - Dyspnoea [Not Recovered/Not Resolved]
  - Vomiting [Unknown]
  - Pleural effusion [Unknown]
  - Nausea [Unknown]

NARRATIVE: CASE EVENT DATE: 20150310
